FAERS Safety Report 6781491-8 (Version None)
Quarter: 2010Q2

REPORT INFORMATION
  Report Type: 
  Country: None (occurrence: None)
  Receive Date: 20100621
  Receipt Date: 20100609
  Transmission Date: 20101027
  Serious: Yes (Other)
  Sender: FDA-Public Use
  Company Number: JP-PFIZER INC-2010072411

PATIENT
  Age: 47 Year
  Sex: Female

DRUGS (3)
  1. DEPO-MEDROL [Suspect]
     Indication: RETINAL VASCULITIS
     Dosage: 100 UNK, UNK
  2. MEDROL [Suspect]
     Dosage: 5-10MG/DAY
     Route: 048
  3. ENDOXAN [Suspect]
     Indication: MIXED CONNECTIVE TISSUE DISEASE
     Dosage: 100 MG/DAY

REACTIONS (3)
  - CYTOMEGALOVIRUS CHORIORETINITIS [None]
  - DRUG INEFFECTIVE [None]
  - VISUAL ACUITY REDUCED [None]
